FAERS Safety Report 19703449 (Version 2)
Quarter: 2021Q4

REPORT INFORMATION
  Report Type: Spontaneous
  Country: AR (occurrence: AR)
  Receive Date: 20210816
  Receipt Date: 20211213
  Transmission Date: 20220304
  Serious: Yes (Other)
  Sender: FDA-Public Use
  Company Number: AR-PFIZER INC-202100999433

PATIENT
  Age: 74 Year
  Sex: Male

DRUGS (4)
  1. ENBREL [Suspect]
     Active Substance: ETANERCEPT
     Indication: Ankylosing spondylitis
     Dosage: 50 MG, WEEKLY
     Route: 065
     Dates: start: 20080701
  2. ENBREL [Suspect]
     Active Substance: ETANERCEPT
     Dosage: 50 MG, EVERY 15 DAYS
     Route: 065
  3. ENBREL [Suspect]
     Active Substance: ETANERCEPT
     Dosage: 50 MG, WEEKLY
     Route: 065
     Dates: start: 20210804
  4. COVID-19 VACCINE NOS [Suspect]
     Active Substance: COVID-19 VACCINE NOS
     Indication: COVID-19 immunisation
     Dosage: DOSE NUMBER UNKNOWN, SINGLE
     Route: 065

REACTIONS (6)
  - Ankylosing spondylitis [Recovered/Resolved]
  - Off label use [Recovered/Resolved]
  - Pyrexia [Recovered/Resolved]
  - Back pain [Recovered/Resolved]
  - Musculoskeletal disorder [Recovered/Resolved]
  - Malaise [Recovered/Resolved]

NARRATIVE: CASE EVENT DATE: 20210701
